FAERS Safety Report 7736249-X (Version None)
Quarter: 2011Q3

REPORT INFORMATION
  Report Type: 
  Country: None (occurrence: None)
  Receive Date: 20110908
  Receipt Date: 20110830
  Transmission Date: 20111222
  Serious: Yes (Death, Other)
  Sender: FDA-Public Use
  Company Number: FR-AMGEN-FRASP2011030354

PATIENT
  Sex: Female

DRUGS (1)
  1. ARANESP [Suspect]
     Indication: APLASIA PURE RED CELL

REACTIONS (3)
  - THERAPEUTIC RESPONSE DECREASED [None]
  - OPPORTUNISTIC INFECTION [None]
  - PANCYTOPENIA [None]
